FAERS Safety Report 24765585 (Version 1)
Quarter: 2024Q4

REPORT INFORMATION
  Report Type: Spontaneous
  Country: US (occurrence: None)
  Receive Date: 20241221
  Receipt Date: 20241221
  Transmission Date: 20250114
  Serious: Yes (Hospitalization)
  Sender: Public
  Company Number: None

PATIENT
  Sex: Female
  Weight: 44.1 kg

DRUGS (3)
  1. CYCLOPHOSPHAMIDE [Suspect]
     Active Substance: CYCLOPHOSPHAMIDE
  2. DACTINOMYCIN [Suspect]
     Active Substance: DACTINOMYCIN
  3. VINCRISTINE SULFATE [Suspect]
     Active Substance: VINCRISTINE SULFATE

REACTIONS (13)
  - Pyrexia [None]
  - Neutropenia [None]
  - Pancytopenia [None]
  - Abdominal pain [None]
  - Epistaxis [None]
  - Constipation [None]
  - Coagulation time abnormal [None]
  - Jaundice [None]
  - Aspartate aminotransferase increased [None]
  - Alanine aminotransferase increased [None]
  - Blood bilirubin increased [None]
  - Ascites [None]
  - Portal vein flow decreased [None]

NARRATIVE: CASE EVENT DATE: 20241219
